FAERS Safety Report 7067439-X (Version None)
Quarter: 2010Q4

REPORT INFORMATION
  Report Type: 
  Country: None (occurrence: None)
  Receive Date: 20101026
  Receipt Date: 20101026
  Transmission Date: 20110411
  Serious: Yes (Other)
  Sender: FDA-Public Use
  Company Number: None

PATIENT
  Age: 51 Year
  Sex: Female
  Weight: 68.0396 kg

DRUGS (1)
  1. LEVAQUIN 750 MG JANSSEN PHARMA [Suspect]
     Indication: ENTERITIS
     Dosage: 750 MG 1 TABLET PER DAY PO
     Route: 048
     Dates: start: 20100910, end: 20101011

REACTIONS (10)
  - DISTURBANCE IN ATTENTION [None]
  - DYSPNOEA [None]
  - FATIGUE [None]
  - INFLAMMATION [None]
  - INSOMNIA [None]
  - MALAISE [None]
  - MYALGIA [None]
  - PARAESTHESIA [None]
  - SOMNOLENCE [None]
  - TENDONITIS [None]
